FAERS Safety Report 20311276 (Version 1)
Quarter: 2022Q1

REPORT INFORMATION
  Report Type: Spontaneous
  Country: US (occurrence: US)
  Receive Date: 20220107
  Receipt Date: 20220107
  Transmission Date: 20220423
  Serious: Yes (Death, Hospitalization, Other)
  Sender: FDA-Public Use
  Company Number: US-PURDUE-USA-2022-0290554

PATIENT
  Age: 29 Year
  Sex: Female

DRUGS (6)
  1. LIDOCAINE [Suspect]
     Active Substance: LIDOCAINE
     Indication: Ewing^s sarcoma metastatic
     Dosage: 2 MG/KG
     Route: 042
  2. LIDOCAINE [Suspect]
     Active Substance: LIDOCAINE
     Indication: Cancer pain
     Dosage: 1 MG/KG/HOUR, BASED ON IDEAL BODY WEIGHT
     Route: 042
  3. LIDOCAINE [Suspect]
     Active Substance: LIDOCAINE
     Dosage: 1.6 MG/KG/HOUR
     Route: 042
  4. LIDOCAINE [Suspect]
     Active Substance: LIDOCAINE
     Dosage: 1 MG/KG/HOUR
     Route: 042
  5. DEXAMETHASONE [Suspect]
     Active Substance: DEXAMETHASONE
     Indication: Spinal cord compression
     Dosage: 10 MG IV QAM
     Route: 042
  6. DEXAMETHASONE [Suspect]
     Active Substance: DEXAMETHASONE
     Dosage: 10 MG IV Q8 HOURS
     Route: 042

REACTIONS (5)
  - Death [Fatal]
  - Hoigne^s syndrome [Unknown]
  - Spinal cord compression [Unknown]
  - Hypoaesthesia oral [Unknown]
  - Hallucination [Recovered/Resolved]
